FAERS Safety Report 7178333-8 (Version None)
Quarter: 2010Q4

REPORT INFORMATION
  Report Type: 
  Country: None (occurrence: None)
  Receive Date: 20101220
  Receipt Date: 20101207
  Transmission Date: 20110411
  Serious: Yes (Other)
  Sender: FDA-Public Use
  Company Number: US-WATSON-2009-08855

PATIENT
  Sex: Female
  Weight: 70.748 kg

DRUGS (3)
  1. GELNIQUE [Suspect]
     Indication: HYPERTONIC BLADDER
     Dosage: 1 SACHET, DAILY
     Route: 061
  2. GELNIQUE [Suspect]
     Dosage: 1 SACHET, DAILY
     Route: 061
     Dates: start: 20090801, end: 20091019
  3. CIPRO [Suspect]
     Indication: URINARY TRACT INFECTION
     Dosage: UNK
     Route: 048
     Dates: start: 20090901, end: 20090901

REACTIONS (7)
  - ABDOMINAL PAIN [None]
  - ALANINE AMINOTRANSFERASE INCREASED [None]
  - APPLICATION SITE RASH [None]
  - ASPARTATE AMINOTRANSFERASE INCREASED [None]
  - BLOOD ALKALINE PHOSPHATASE INCREASED [None]
  - CHEST DISCOMFORT [None]
  - URINARY TRACT INFECTION [None]
